FAERS Safety Report 4421438-2 (Version None)
Quarter: 2004Q3

REPORT INFORMATION
  Report Type: 
  Country: None (occurrence: None)
  Receive Date: 20040709
  Receipt Date: 20040514
  Transmission Date: 20050211
  Serious: No
  Sender: FDA-Public Use
  Company Number: 2004S1000098

PATIENT
  Age: 40 Year
  Sex: Male
  Weight: 71.2 kg

DRUGS (3)
  1. CUBICIN [Suspect]
     Indication: STAPHYLOCOCCAL BACTERAEMIA
     Dosage: 6 MG/KG; QD; IV
     Route: 042
     Dates: start: 20040423, end: 20040510
  2. VANCOMYCIN [Concomitant]
  3. NEUPOGEN [Concomitant]

REACTIONS (2)
  - NEUTROPENIA [None]
  - PRURITUS [None]
